FAERS Safety Report 18558807 (Version 1)
Quarter: 2020Q4

REPORT INFORMATION
  Report Type: Report from Study
  Country: None (occurrence: JP)
  Receive Date: 20201130
  Receipt Date: 20201130
  Transmission Date: 20210114
  Serious: Yes (Death, Hospitalization)
  Sender: FDA-Public Use
  Company Number: JP-ABBVIE-20P-087-3668956-00

PATIENT
  Age: 67 Year
  Sex: Male

DRUGS (1)
  1. LEUPRORELIN [Suspect]
     Active Substance: LEUPROLIDE ACETATE
     Indication: BULBOSPINAL MUSCULAR ATROPHY CONGENITAL
     Dosage: 11.25 MILLIGRAM, Q3MONTHS
     Route: 050
     Dates: start: 20171102

REACTIONS (2)
  - Fracture [Unknown]
  - Respiratory failure [Fatal]

NARRATIVE: CASE EVENT DATE: 20201102
